FAERS Safety Report 13497025 (Version 6)
Quarter: 2019Q1

REPORT INFORMATION
  Report Type: Spontaneous
  Country: CZ (occurrence: CZ)
  Receive Date: 20170428
  Receipt Date: 20190110
  Transmission Date: 20190417
  Serious: Yes (Death, Hospitalization, Other)
  Sender: FDA-Public Use
  Company Number: CZ-PFIZER INC-2017180007

PATIENT
  Age: 57 Year
  Sex: Female
  Weight: 85 kg

DRUGS (8)
  1. THEOPHYLLINE [Concomitant]
     Active Substance: THEOPHYLLINE ANHYDROUS
     Indication: CHRONIC OBSTRUCTIVE PULMONARY DISEASE
     Dosage: 1 DF, 2X/DAY
  2. HYDROCHLOROTHIAZIDE. [Concomitant]
     Active Substance: HYDROCHLOROTHIAZIDE
     Indication: HYPERTENSION
     Dosage: UNK, DAILY
  3. CYNT 0.3 [Concomitant]
     Dosage: 1 DF, 1X/DAY
  4. LOSARTAN. [Concomitant]
     Active Substance: LOSARTAN
     Indication: HYPERTENSION
     Dosage: UNK, DAILY
  5. HYDROCHLOROTHIAZIDE/LOSARTAN POTASSIUM [Concomitant]
     Dosage: 1 DF, 1X/DAY
  6. PROPOFOL. [Suspect]
     Active Substance: PROPOFOL
     Indication: ANAESTHESIA
     Dosage: 200 MG, AT THE BEGINNING OF THE ANAESTHESIA
     Dates: start: 20150601, end: 20150601
  7. PROPOFOL. [Suspect]
     Active Substance: PROPOFOL
     Dosage: 50 MG, DURING THE OPERATION
     Dates: start: 20150601, end: 20150601
  8. LOMIR SRO [Concomitant]
     Indication: HYPERTENSION
     Dosage: 1 DF, 1X/DAY

REACTIONS (4)
  - Pancreatitis acute [Fatal]
  - Septic shock [Fatal]
  - Multiple organ dysfunction syndrome [Fatal]
  - Splenic rupture [Fatal]

NARRATIVE: CASE EVENT DATE: 2015
